FAERS Safety Report 9142652 (Version 3)
Quarter: 2013Q3

REPORT INFORMATION
  Report Type: Spontaneous
  Country: JP (occurrence: JP)
  Receive Date: 20130306
  Receipt Date: 20130927
  Transmission Date: 20140515
  Serious: Yes (Life-Threatening, Hospitalization, Other)
  Sender: FDA-Public Use
  Company Number: PHHY2013JP021639

PATIENT
  Age: 61 Year
  Sex: Female
  Weight: 49 kg

DRUGS (13)
  1. ZOMETA [Suspect]
     Indication: METASTASES TO BONE
     Dosage: 4 MG, PER ADMINISTRATION
     Route: 041
     Dates: start: 20090106, end: 20130111
  2. FASLODEX [Concomitant]
     Indication: BREAST CANCER
     Dosage: UNK UKN, UNK
     Route: 030
     Dates: start: 20081105
  3. FASLODEX [Concomitant]
     Dosage: UNK UKN, UNK
     Route: 030
     Dates: start: 20130227
  4. GEMCITABINE [Concomitant]
     Indication: BREAST CANCER
     Dosage: UNK UKN, UNK
     Route: 042
     Dates: start: 20081105
  5. GEMCITABINE [Concomitant]
     Dosage: UNK UKN, UNK
     Route: 042
     Dates: start: 20130123, end: 20130410
  6. NAVELBINE [Concomitant]
     Indication: BREAST CANCER
     Dosage: UNK UKN, UNK
     Route: 042
     Dates: start: 20081105
  7. NAVELBINE [Concomitant]
     Dosage: UNK UKN, UNK
     Route: 042
     Dates: start: 20120822, end: 20130111
  8. GEMZAR [Concomitant]
     Indication: BREAST CANCER
     Dosage: UNK UKN, UNK
     Route: 042
     Dates: start: 20081105
  9. GEMZAR [Concomitant]
     Dosage: UNK UKN, UNK
     Route: 042
     Dates: start: 20120123, end: 20120809
  10. PACLITAXEL [Concomitant]
     Indication: BREAST CANCER
     Dosage: UNK UKN, UNK
     Route: 042
     Dates: start: 20081105
  11. PACLITAXEL [Concomitant]
     Dosage: UNK UKN, UNK
     Route: 042
     Dates: start: 20110630, end: 20111130
  12. BENCYCLANE FUMARATE [Concomitant]
     Indication: BREAST CANCER
     Dosage: UNK UKN, UNK
     Route: 042
     Dates: start: 20081105, end: 20091130
  13. TAXOTERE [Concomitant]
     Indication: BREAST CANCER
     Dosage: UNK UKN, UNK
     Route: 042
     Dates: start: 20081105, end: 20091130

REACTIONS (19)
  - Osteomyelitis [Recovering/Resolving]
  - Asthenia [Unknown]
  - Osteonecrosis of jaw [Unknown]
  - Pain [Unknown]
  - Swelling [Unknown]
  - Dental caries [Unknown]
  - Periodontitis [Unknown]
  - Periodontal disease [Unknown]
  - Purulent discharge [Unknown]
  - Tooth loss [Unknown]
  - Haemorrhage [Unknown]
  - Gingival erythema [Unknown]
  - Dysphagia [Unknown]
  - Hypophagia [Unknown]
  - Fistula [Unknown]
  - Blood glucose increased [Recovered/Resolved]
  - Weight decreased [Unknown]
  - Cachexia [Unknown]
  - Quality of life decreased [Unknown]
